FAERS Safety Report 12578208 (Version 1)
Quarter: 2016Q3

REPORT INFORMATION
  Report Type: Spontaneous
  Country: US (occurrence: US)
  Receive Date: 20160721
  Receipt Date: 20160721
  Transmission Date: 20161109
  Serious: No
  Sender: FDA-Public Use
  Company Number: US-TEVA-672909USA

PATIENT
  Age: 22 Year
  Sex: Female

DRUGS (1)
  1. ZECUITY [Suspect]
     Active Substance: SUMATRIPTAN SUCCINATE
     Route: 062
     Dates: start: 201605, end: 201605

REACTIONS (6)
  - Application site erythema [Recovered/Resolved]
  - Application site irritation [Recovered/Resolved]
  - Application site pain [Recovered/Resolved]
  - Application site paraesthesia [Recovered/Resolved]
  - Application site warmth [Recovered/Resolved]
  - Incorrect drug administration duration [Unknown]

NARRATIVE: CASE EVENT DATE: 201605
